FAERS Safety Report 6088081-3 (Version None)
Quarter: 2009Q1

REPORT INFORMATION
  Report Type: 
  Country: None (occurrence: None)
  Receive Date: 20090218
  Receipt Date: 20090120
  Transmission Date: 20090719
  Serious: Yes (Hospitalization)
  Sender: FDA-Public Use
  Company Number: 20096216

PATIENT
  Age: 33 Year
  Sex: Male

DRUGS (1)
  1. LIORESAL [Suspect]
     Indication: MUSCLE SPASTICITY
     Dosage: 20 ML, 500 MCG/ML, INTRATHECAL
     Route: 037

REACTIONS (3)
  - DRUG TOXICITY [None]
  - DYSPNOEA [None]
  - HAEMODYNAMIC INSTABILITY [None]
